FAERS Safety Report 9255125 (Version 3)
Quarter: 2013Q3

REPORT INFORMATION
  Report Type: Report from Study
  Country: US (occurrence: US)
  Receive Date: 20130425
  Receipt Date: 20130829
  Transmission Date: 20140515
  Serious: Yes (Hospitalization)
  Sender: FDA-Public Use
  Company Number: US-ELI_LILLY_AND_COMPANY-US201211009087

PATIENT
  Age: 64 Year
  Sex: Female
  Weight: 90.7 kg

DRUGS (20)
  1. TERIPARATIDE [Suspect]
     Indication: OSTEOPOROSIS
     Dosage: 20 UG, QD
     Route: 058
     Dates: start: 20120510
  2. TERIPARATIDE [Suspect]
     Dosage: 20 UG, QD
  3. TERIPARATIDE [Suspect]
     Dosage: 20 UG, QD
  4. TERIPARATIDE [Suspect]
     Dosage: 20 UG, QD
  5. CYMBALTA [Suspect]
     Indication: FIBROMYALGIA
     Dosage: 60 MG, QD
     Route: 048
  6. PRILOSEC [Concomitant]
     Indication: GASTROOESOPHAGEAL REFLUX DISEASE
     Dosage: 20 MG, QD
  7. PEPCID [Concomitant]
     Indication: GASTROOESOPHAGEAL REFLUX DISEASE
  8. PLAVIX [Concomitant]
     Dosage: 75 MG, QOD
  9. AGGRENOX [Concomitant]
     Dosage: 25 MG, BID
  10. LASIX [Concomitant]
     Dosage: 20 MG, PRN
  11. LORTAB [Concomitant]
     Dosage: UNK, QD
     Route: 048
  12. KLONOPIN [Concomitant]
     Dosage: 0.5 MG, EACH EVENING
  13. ALBUTEROL SULFATE [Concomitant]
     Dosage: 90 UG, QD
  14. BYSTOLIC [Concomitant]
     Dosage: 10 MG, QD
  15. ASPIRIN [Concomitant]
     Dosage: 81 MG, QD
  16. CALCIUM CARBONATE/VITAMIN D3 [Concomitant]
     Dosage: UNK, QD
  17. CELEBREX [Concomitant]
     Dosage: 200 MG, QD
  18. LYRICA [Concomitant]
     Dosage: 100 MG, EACH MORNING
  19. LYRICA [Concomitant]
     Dosage: 150 MG, EACH EVENING
  20. DURAGESIC [Concomitant]
     Dosage: 25 UG, EVERY HOUR

REACTIONS (15)
  - Pneumonia [Recovered/Resolved]
  - Interstitial lung disease [Recovered/Resolved]
  - Pain [Unknown]
  - Injection site bruising [Unknown]
  - Injection site pain [Unknown]
  - Muscle spasms [Unknown]
  - Onychomadesis [Unknown]
  - Onychoclasis [Unknown]
  - Lipoma of breast [Unknown]
  - Dyspnoea [Unknown]
  - Fibrocystic breast disease [Unknown]
  - Hypoxia [Unknown]
  - Arthralgia [Unknown]
  - Alopecia [Unknown]
  - Weight increased [Unknown]
